FAERS Safety Report 9859981 (Version 2)
Quarter: 2014Q1

REPORT INFORMATION
  Report Type: Spontaneous
  Country: BE (occurrence: BE)
  Receive Date: 20140131
  Receipt Date: 20140227
  Transmission Date: 20141002
  Serious: Yes (Other)
  Sender: FDA-Public Use
  Company Number: BE-AMGEN-BELSP2014006098

PATIENT
  Age: 28 Year
  Sex: Female
  Weight: 67 kg

DRUGS (4)
  1. MIMPARA [Suspect]
     Indication: BLOOD PARATHYROID HORMONE ABNORMAL
     Dosage: 60 MG, QD
     Route: 048
     Dates: start: 201009, end: 201402
  2. ROCALTROL [Concomitant]
     Indication: HYPOCALCAEMIA
     Dosage: 0.25 MUG, QD
     Route: 048
     Dates: start: 201211
  3. PHOSLO [Concomitant]
     Indication: HYPERPHOSPHATAEMIA
     Dosage: 637 MG, BID
     Route: 048
     Dates: start: 201301
  4. RENVELA [Concomitant]
     Indication: HYPERPHOSPHATAEMIA
     Dosage: 800 MG, Q4H
     Route: 048
     Dates: start: 201309

REACTIONS (3)
  - Osteoma [Not Recovered/Not Resolved]
  - Brown tumour [Not Recovered/Not Resolved]
  - Parathyroidectomy [Unknown]
